FAERS Safety Report 7422885-7 (Version None)
Quarter: 2011Q2

REPORT INFORMATION
  Report Type: 
  Country: None (occurrence: None)
  Receive Date: 20110419
  Receipt Date: 20110414
  Transmission Date: 20111010
  Serious: Yes (Hospitalization)
  Sender: FDA-Public Use
  Company Number: FR-SANOFI-AVENTIS-2011SA023078

PATIENT
  Age: 28 Year
  Sex: Male

DRUGS (10)
  1. FENOFIBRATE [Suspect]
     Route: 048
     Dates: start: 20110201, end: 20110328
  2. EFFEXOR [Suspect]
     Route: 048
     Dates: end: 20110328
  3. RISPERDAL [Suspect]
     Route: 065
     Dates: end: 20110328
  4. TERCIAN [Suspect]
     Route: 048
     Dates: end: 20110328
  5. TEGRETOL [Suspect]
     Route: 048
     Dates: start: 20110201, end: 20110328
  6. AVLOCARDYL [Suspect]
     Route: 048
     Dates: end: 20110328
  7. HAVLANE [Suspect]
     Route: 048
     Dates: end: 20110328
  8. STILNOX [Suspect]
     Route: 048
     Dates: end: 20110328
  9. TEMESTA [Suspect]
     Route: 048
     Dates: start: 20110201, end: 20110328
  10. SERESTA [Suspect]
     Route: 048
     Dates: end: 20110328

REACTIONS (1)
  - HEPATOCELLULAR INJURY [None]
